FAERS Safety Report 9094922 (Version 1)
Quarter: 2013Q1

REPORT INFORMATION
  Report Type: Spontaneous
  Country: US (occurrence: None)
  Receive Date: 20130214
  Receipt Date: 20130214
  Transmission Date: 20140127
  Serious: No
  Sender: FDA-Public Use
  Company Number: None

PATIENT
  Age: 27 Year
  Sex: Male
  Weight: 83.92 kg

DRUGS (1)
  1. AMOXICILLIN 500MG TEVA [Suspect]
     Indication: TOOTH INFECTION
     Dosage: 1
     Route: 048
     Dates: start: 20130210, end: 20130210

REACTIONS (3)
  - Vomiting [None]
  - Diarrhoea [None]
  - Fatigue [None]
